FAERS Safety Report 21450987 (Version 2)
Quarter: 2022Q4

REPORT INFORMATION
  Report Type: Spontaneous
  Country: US (occurrence: US)
  Receive Date: 20221013
  Receipt Date: 20221019
  Transmission Date: 20230113
  Serious: Yes (Life-Threatening, Hospitalization, Other)
  Sender: FDA-Public Use
  Company Number: US-SA-2022SA414456

PATIENT
  Age: 78 Year
  Sex: Male

DRUGS (3)
  1. OXALIPLATIN [Interacting]
     Active Substance: OXALIPLATIN
     Indication: Colorectal cancer
     Dosage: INFUSION
  2. OXALIPLATIN [Interacting]
     Active Substance: OXALIPLATIN
     Indication: Chemotherapy
  3. DOFETILIDE [Interacting]
     Active Substance: DOFETILIDE
     Indication: Atrial fibrillation

REACTIONS (6)
  - Pulseless electrical activity [Recovered/Resolved]
  - Cardiac arrest [Recovered/Resolved]
  - Brain injury [Recovered/Resolved]
  - Torsade de pointes [Recovered/Resolved]
  - Drug interaction [Recovered/Resolved]
  - Tachycardia [Recovered/Resolved]
